FAERS Safety Report 6704816-8 (Version None)
Quarter: 2010Q2

REPORT INFORMATION
  Report Type: 
  Country: None (occurrence: None)
  Receive Date: 20100430
  Receipt Date: 20091208
  Transmission Date: 20101027
  Serious: No
  Sender: FDA-Public Use
  Company Number: US-ASTRAZENECA-2009SE31041

PATIENT
  Age: 72 Year
  Sex: Female
  Weight: 54.4 kg

DRUGS (9)
  1. NEXIUM [Suspect]
     Indication: GASTROOESOPHAGEAL REFLUX DISEASE
     Route: 048
     Dates: start: 20091101
  2. LORAZEPAM [Concomitant]
     Indication: SLEEP DISORDER
  3. LIPITOR [Concomitant]
  4. ZOLOFT [Concomitant]
  5. EYE CAPS [Concomitant]
     Indication: MACULAR DEGENERATION
  6. KETONAZOLE [Concomitant]
     Indication: FUNGAL INFECTION
  7. ALBUTEROL [Concomitant]
  8. PANTOPRAZOLE [Concomitant]
     Indication: GASTROOESOPHAGEAL REFLUX DISEASE
  9. STEROIDS [Concomitant]

REACTIONS (5)
  - LOCAL SWELLING [None]
  - OEDEMA PERIPHERAL [None]
  - PRE-EXISTING CONDITION IMPROVED [None]
  - SWELLING FACE [None]
  - THERAPEUTIC RESPONSE UNEXPECTED [None]
